FAERS Safety Report 8988676 (Version 2)
Quarter: 2013Q1

REPORT INFORMATION
  Report Type: Report from Study
  Country: AT (occurrence: AT)
  Receive Date: 20121227
  Receipt Date: 20130326
  Transmission Date: 20140127
  Serious: Yes (Hospitalization)
  Sender: FDA-Public Use
  Company Number: AT-ROCHE-1131430

PATIENT
  Age: 52 Year
  Sex: Male
  Weight: 80 kg

DRUGS (2)
  1. VEMURAFENIB [Suspect]
     Indication: MALIGNANT MELANOMA
     Dosage: DATE OF LAST DOSE PRIOR TO SAE:16/AUG/2012
     Route: 048
     Dates: start: 20120405
  2. FRAGMIN [Concomitant]
     Route: 065
     Dates: start: 20120912

REACTIONS (1)
  - Blood alkaline phosphatase increased [Not Recovered/Not Resolved]
